FAERS Safety Report 5265729-4 (Version None)
Quarter: 2007Q1

REPORT INFORMATION
  Report Type: 
  Country: None (occurrence: None)
  Receive Date: 20061213
  Receipt Date: 20041104
  Transmission Date: 20070707
  Serious: Yes (Other)
  Sender: FDA-Public Use
  Company Number: 2004UW22840

PATIENT
  Age: 78 Year
  Sex: Male

DRUGS (1)
  1. IRESSA [Suspect]

REACTIONS (4)
  - BACK PAIN [None]
  - NAUSEA [None]
  - PRURITUS [None]
  - RASH [None]
